FAERS Safety Report 17477648 (Version 1)
Quarter: 2020Q1

REPORT INFORMATION
  Report Type: Spontaneous
  Country: JP (occurrence: JP)
  Receive Date: 20200228
  Receipt Date: 20200228
  Transmission Date: 20200409
  Serious: Yes (Other)
  Sender: FDA-Public Use
  Company Number: JP-PFIZER INC-2020085741

PATIENT
  Age: 49 Year
  Sex: Female

DRUGS (5)
  1. MELPHALAN. [Suspect]
     Active Substance: MELPHALAN
     Dosage: 40 MG/M2, UNK (DAYS -3, -2)
  2. METHOTREXATE SODIUM. [Suspect]
     Active Substance: METHOTREXATE SODIUM
     Indication: IMMUNOSUPPRESSION
     Dosage: UNK
  3. TACROLIMUS. [Suspect]
     Active Substance: TACROLIMUS
     Indication: IMMUNOSUPPRESSION
     Dosage: UNK
  4. FLUDARABINE [Suspect]
     Active Substance: FLUDARABINE PHOSPHATE
     Dosage: 30 MG/M2, UNK (DAYS -7 TO -2)
  5. BUSULFAN. [Suspect]
     Active Substance: BUSULFAN
     Dosage: 3.2 MG/KG, UNK (DAYS -5, -4)

REACTIONS (1)
  - Leukoencephalopathy [Unknown]
